FAERS Safety Report 10213233 (Version 1)
Quarter: 2014Q2

REPORT INFORMATION
  Report Type: Spontaneous
  Country: KR (occurrence: KR)
  Receive Date: 20140603
  Receipt Date: 20140603
  Transmission Date: 20141212
  Serious: Yes (Disabling)
  Sender: FDA-Public Use
  Company Number: KR-009507513-1405KOR013805

PATIENT
  Age: 39 Year
  Sex: Female

DRUGS (1)
  1. IMPLANON NXT [Suspect]
     Indication: CONTRACEPTION
     Dosage: 68 MG, FREQUENCY 1
     Route: 058
     Dates: start: 20140303, end: 20140526

REACTIONS (2)
  - Activities of daily living impaired [Recovered/Resolved]
  - Menstruation irregular [Recovered/Resolved]
